FAERS Safety Report 10151709 (Version 3)
Quarter: 2014Q2

REPORT INFORMATION
  Report Type: Report from Study
  Country: US (occurrence: US)
  Receive Date: 20140505
  Receipt Date: 20140602
  Transmission Date: 20141212
  Serious: Yes (Hospitalization, Other)
  Sender: FDA-Public Use
  Company Number: US-BIOGENIDEC-2014BI038213

PATIENT
  Sex: Female
  Weight: 92 kg

DRUGS (15)
  1. AVONEX [Suspect]
     Indication: RELAPSING-REMITTING MULTIPLE SCLEROSIS
     Route: 030
     Dates: start: 20020419
  2. NEURONTIN [Concomitant]
     Route: 048
  3. ENTERIC COATED ASPIRIN [Concomitant]
     Route: 048
  4. PREDNISONE [Concomitant]
     Route: 048
  5. PRINIVIL [Concomitant]
     Route: 048
  6. PRINIVIL [Concomitant]
     Route: 048
  7. SULINDAC [Concomitant]
     Route: 048
  8. FLEXERIL [Concomitant]
     Route: 048
  9. FUROSEMIDE [Concomitant]
     Route: 048
  10. LIDODERM PATCH [Concomitant]
     Route: 062
  11. METFORMIN HCL [Concomitant]
     Route: 048
  12. METOPROLOLTARTRATE [Concomitant]
     Route: 048
  13. NITROGLYCERIN [Concomitant]
     Route: 060
  14. NORVASC [Concomitant]
     Route: 048
  15. SYNTHROID [Concomitant]
     Route: 048

REACTIONS (9)
  - Pneumonia [Unknown]
  - Pneumonitis [Unknown]
  - Catheterisation cardiac [Unknown]
  - Back pain [Unknown]
  - Cerebrovascular accident [Recovered/Resolved]
  - Intervertebral disc disorder [Recovered/Resolved]
  - Scoliosis [Recovered/Resolved]
  - Rheumatoid arthritis [Not Recovered/Not Resolved]
  - Back disorder [Not Recovered/Not Resolved]
